FAERS Safety Report 24003272 (Version 1)
Quarter: 2024Q2

REPORT INFORMATION
  Report Type: Spontaneous
  Country: US (occurrence: US)
  Receive Date: 20240624
  Receipt Date: 20240624
  Transmission Date: 20240716
  Serious: No
  Sender: FDA-Public Use
  Company Number: US-SA-SAC20240620000181

PATIENT
  Sex: Female

DRUGS (9)
  1. DUPIXENT [Suspect]
     Active Substance: DUPILUMAB
     Indication: Dermatitis atopic
     Dosage: 300 MG, QOW
     Route: 058
     Dates: start: 20220914
  2. ATORVASTATIN [Concomitant]
     Active Substance: ATORVASTATIN
  3. CETIRIZINE [Concomitant]
     Active Substance: CETIRIZINE HYDROCHLORIDE
  4. GLYBURIDE [Concomitant]
     Active Substance: GLYBURIDE
  5. JANUMET [Concomitant]
     Active Substance: METFORMIN HYDROCHLORIDE\SITAGLIPTIN PHOSPHATE
     Dosage: JANUMET TAB 50-1000;
  6. LISINOPRIL [Concomitant]
     Active Substance: LISINOPRIL
  7. MONTELUKAST [Concomitant]
     Active Substance: MONTELUKAST SODIUM
  8. PANTOPRAZOLE [Concomitant]
     Active Substance: PANTOPRAZOLE
  9. METOCLOPRAMIDE [Concomitant]
     Active Substance: METOCLOPRAMIDE

REACTIONS (2)
  - Illness [Not Recovered/Not Resolved]
  - Product dose omission in error [Unknown]
